FAERS Safety Report 19761615 (Version 1)
Quarter: 2021Q3

REPORT INFORMATION
  Report Type: Spontaneous
  Country: US (occurrence: US)
  Receive Date: 20210828
  Receipt Date: 20210828
  Transmission Date: 20211014
  Serious: Yes (Hospitalization)
  Sender: FDA-Public Use
  Company Number: None

PATIENT
  Sex: Female

DRUGS (19)
  1. BOSULIF [Concomitant]
     Active Substance: BOSUTINIB MONOHYDRATE
  2. DICLOFENAC [Concomitant]
     Active Substance: DICLOFENAC
  3. ELIQUIS [Concomitant]
     Active Substance: APIXABAN
  4. FERROUS SULFATE. [Concomitant]
     Active Substance: FERROUS SULFATE
  5. FLONASE [Concomitant]
     Active Substance: FLUTICASONE PROPIONATE
  6. POTASSIUM [Concomitant]
     Active Substance: POTASSIUM
  7. BIDIL [Concomitant]
     Active Substance: HYDRALAZINE HYDROCHLORIDE\ISOSORBIDE DINITRATE
  8. VITAMIN C [Concomitant]
     Active Substance: ASCORBIC ACID
  9. VITAMIN D3 [Concomitant]
     Active Substance: CHOLECALCIFEROL
  10. ATORVASTATIN [Concomitant]
     Active Substance: ATORVASTATIN
  11. CLOPIDOGREL [Concomitant]
     Active Substance: CLOPIDOGREL BISULFATE
  12. NITROGLYCERIN. [Concomitant]
     Active Substance: NITROGLYCERIN
  13. PANTOPRAZOLE [Concomitant]
     Active Substance: PANTOPRAZOLE
  14. PREGABLIN [Concomitant]
     Active Substance: PREGABALIN
  15. BUMETANIDE. [Concomitant]
     Active Substance: BUMETANIDE
  16. METOPROLOL TARTARATE [Concomitant]
     Active Substance: METOPROLOL TARTRATE
  17. BOSULIF [Suspect]
     Active Substance: BOSUTINIB MONOHYDRATE
     Indication: CHRONIC MYELOID LEUKAEMIA
     Route: 048
  18. ALBUTEROL. [Concomitant]
     Active Substance: ALBUTEROL
  19. WIXELA INHUB [Concomitant]
     Active Substance: FLUTICASONE PROPIONATE\SALMETEROL XINAFOATE

REACTIONS (3)
  - Disease progression [None]
  - Lung carcinoma cell type unspecified recurrent [None]
  - Cardiac failure [None]
